FAERS Safety Report 9069255 (Version 8)
Quarter: 2020Q3

REPORT INFORMATION
  Report Type: Report from Study
  Country: JP (occurrence: JP)
  Receive Date: 20130215
  Receipt Date: 20140218
  Transmission Date: 20201104
  Serious: Yes (Hospitalization)
  Sender: FDA-Public Use
  Company Number: JP-JNJFOC-20130205368

PATIENT
  Age: 26 Year
  Sex: Male
  Weight: 69.3 kg

DRUGS (5)
  1. GOLIMUMAB [Suspect]
     Active Substance: GOLIMUMAB
     Indication: COLITIS ULCERATIVE
     Route: 058
     Dates: start: 20091030
  2. GOLIMUMAB [Suspect]
     Active Substance: GOLIMUMAB
     Indication: COLITIS ULCERATIVE
     Route: 058
     Dates: start: 20130119
  3. SALAZOSULFAPYRIDINE [Concomitant]
     Active Substance: SULFASALAZINE
     Indication: COLITIS ULCERATIVE
     Route: 048
     Dates: start: 20060819
  4. BIO?THREE [Concomitant]
     Active Substance: HERBALS
     Indication: COLITIS ULCERATIVE
     Route: 048
     Dates: start: 20060624, end: 20130301
  5. TSUMURA SAIREITO EXTRACT [Concomitant]
     Indication: COLITIS ULCERATIVE
     Route: 048
     Dates: start: 20061118

REACTIONS (1)
  - Anal abscess [Recovered/Resolved]

NARRATIVE: CASE EVENT DATE: 20130207
